FAERS Safety Report 8366629-3 (Version None)
Quarter: 2012Q2

REPORT INFORMATION
  Report Type: 
  Country: None (occurrence: None)
  Receive Date: 20120517
  Receipt Date: 20120511
  Transmission Date: 20120825
  Serious: Yes (Hospitalization)
  Sender: FDA-Public Use
  Company Number: US-BAYER-2012-047309

PATIENT
  Age: 23 Year
  Sex: Female

DRUGS (7)
  1. PROMETHAZINE W/ CODEINE [Concomitant]
     Indication: UPPER RESPIRATORY TRACT CONGESTION
  2. AZITHROMYCIN [Concomitant]
     Indication: UPPER RESPIRATORY TRACT CONGESTION
  3. AZITHROMYCIN [Concomitant]
     Indication: COUGH
     Dosage: 250 MG TAKE TWO TABLETS ON DAY 1 THAN TAKE 1 TABLET A DAY FOR 5 DAYS
     Route: 048
     Dates: start: 20110402
  4. PROMETHAZINE W/ CODEINE [Concomitant]
     Indication: COUGH
     Dosage: 6.25 - 10 MG/5ML, PRN
     Route: 048
     Dates: start: 20110329
  5. ROBITUSSIN WITH CODEINE [Concomitant]
     Indication: COUGH
  6. YASMIN [Suspect]
     Indication: DYSMENORRHOEA
  7. MULTI-VITAMINS [Concomitant]

REACTIONS (2)
  - PULMONARY EMBOLISM [None]
  - DEEP VEIN THROMBOSIS [None]
